FAERS Safety Report 24147893 (Version 1)
Quarter: 2024Q3

REPORT INFORMATION
  Report Type: Spontaneous
  Country: US (occurrence: None)
  Receive Date: 20240727
  Receipt Date: 20240727
  Transmission Date: 20241017
  Serious: Yes (Other)
  Sender: Public
  Company Number: None

PATIENT
  Age: 61 Year
  Sex: Female
  Weight: 51.75 kg

DRUGS (10)
  1. GABAPENTIN [Suspect]
     Active Substance: GABAPENTIN
     Indication: Seizure
     Dosage: 100 MG 3 TIMES A DAY ORAL?
     Route: 048
     Dates: start: 20240611, end: 20240611
  2. GABAPENTIN [Suspect]
     Active Substance: GABAPENTIN
     Indication: Neuralgia
  3. GABAPENTIN [Suspect]
     Active Substance: GABAPENTIN
     Indication: Pain in extremity
  4. KEPPRA [Concomitant]
     Active Substance: LEVETIRACETAM
  5. COENZYME Q10 [Concomitant]
     Active Substance: DIETARY SUPPLEMENT\UBIDECARENONE
  6. VITAMINS [Concomitant]
     Active Substance: VITAMINS
  7. VITAMIN D3 [Concomitant]
     Active Substance: CHOLECALCIFEROL
  8. VITAMIN B12 [Concomitant]
     Active Substance: CYANOCOBALAMIN
  9. microgram [Concomitant]
  10. MOTRIN [Concomitant]
     Active Substance: IBUPROFEN

REACTIONS (8)
  - Hypoaesthesia [None]
  - Gait disturbance [None]
  - Limb discomfort [None]
  - Pain in extremity [None]
  - Tinnitus [None]
  - Rash [None]
  - Renal pain [None]
  - Pain in extremity [None]

NARRATIVE: CASE EVENT DATE: 20240611
